FAERS Safety Report 5467765-1 (Version None)
Quarter: 2007Q3

REPORT INFORMATION
  Report Type: 
  Country: None (occurrence: None)
  Receive Date: 20070926
  Receipt Date: 20070917
  Transmission Date: 20080115
  Serious: Yes (Hospitalization)
  Sender: FDA-Public Use
  Company Number: PHEH2007US11820

PATIENT
  Sex: Female

DRUGS (1)
  1. LOTREL [Suspect]
     Route: 048
     Dates: end: 20070813

REACTIONS (1)
  - LIP SWELLING [None]
